FAERS Safety Report 8574997-2 (Version None)
Quarter: 2012Q3

REPORT INFORMATION
  Report Type: 
  Country: None (occurrence: None)
  Receive Date: 20120807
  Receipt Date: 20120731
  Transmission Date: 20120928
  Serious: Yes (Death, Hospitalization)
  Sender: FDA-Public Use
  Company Number: US-BAYER-2012-077629

PATIENT
  Age: 74 Year
  Sex: Female

DRUGS (1)
  1. BETASERON [Suspect]
     Indication: MULTIPLE SCLEROSIS
     Dosage: 8 MIU, QOD
     Route: 058
     Dates: start: 20040817, end: 20120718

REACTIONS (7)
  - ABDOMINAL DISTENSION [None]
  - FALL [None]
  - HIP FRACTURE [None]
  - RESPIRATORY ARREST [None]
  - DEATH [None]
  - SPINAL FRACTURE [None]
  - PAIN [None]
